FAERS Safety Report 14230744 (Version 1)
Quarter: 2017Q4

REPORT INFORMATION
  Report Type: Spontaneous
  Country: CA (occurrence: CA)
  Receive Date: 20171128
  Receipt Date: 20171128
  Transmission Date: 20180321
  Serious: Yes (Other)
  Sender: FDA-Public Use
  Company Number: CA-PFIZER INC-2017508784

PATIENT
  Sex: Male

DRUGS (5)
  1. ENBREL [Suspect]
     Active Substance: ETANERCEPT
     Indication: RHEUMATOID ARTHRITIS
     Dosage: UNK
     Route: 065
  2. HYDROXYCHLOROQUINE [Suspect]
     Active Substance: HYDROXYCHLOROQUINE
     Dosage: 400 MG, UNK
     Route: 065
  3. METHOTREXATE SODIUM. [Suspect]
     Active Substance: METHOTREXATE SODIUM
     Indication: RHEUMATOID ARTHRITIS
     Dosage: 15 MG, UNK
     Route: 065
  4. ORENCIA [Suspect]
     Active Substance: ABATACEPT
     Indication: RHEUMATOID ARTHRITIS
     Dosage: UNK
     Route: 065
  5. ACTEMRA [Suspect]
     Active Substance: TOCILIZUMAB
     Indication: RHEUMATOID ARTHRITIS
     Dosage: UNK
     Route: 065

REACTIONS (16)
  - Drug dose omission [Unknown]
  - Joint swelling [Unknown]
  - Pain in extremity [Unknown]
  - Drug effect incomplete [Unknown]
  - Intestinal polyp [Unknown]
  - White blood cell count decreased [Unknown]
  - Leukopenia [Unknown]
  - Drug intolerance [Unknown]
  - Nephrolithiasis [Unknown]
  - Pain [Unknown]
  - Synovitis [Unknown]
  - Drug ineffective [Unknown]
  - Treatment failure [Unknown]
  - Burning sensation [Unknown]
  - Colitis [Unknown]
  - Peripheral swelling [Unknown]
